FAERS Safety Report 6834565-7 (Version None)
Quarter: 2010Q3

REPORT INFORMATION
  Report Type: 
  Country: None (occurrence: None)
  Receive Date: 20100712
  Receipt Date: 20070414
  Transmission Date: 20110219
  Serious: No
  Sender: FDA-Public Use
  Company Number: US-PFIZER INC-2007030593

PATIENT
  Sex: Female
  Weight: 61 kg

DRUGS (6)
  1. CHANTIX [Suspect]
     Indication: SMOKING CESSATION THERAPY
     Dates: start: 20070409
  2. PAXIL [Concomitant]
     Dates: start: 19920101
  3. WELLBUTRIN [Concomitant]
     Dates: start: 19920101
  4. ALL OTHER THERAPEUTIC PRODUCTS [Concomitant]
     Indication: ARTHRITIS
     Dates: start: 20061101
  5. MORPHINE [Concomitant]
     Dates: start: 20030101
  6. OXYCODONE HCL [Concomitant]
     Dates: start: 20030101

REACTIONS (6)
  - ABDOMINAL PAIN UPPER [None]
  - BACK PAIN [None]
  - DYSPEPSIA [None]
  - GALLBLADDER DISORDER [None]
  - INTENTIONAL DRUG MISUSE [None]
  - SLEEP DISORDER [None]
